FAERS Safety Report 5653377-3 (Version None)
Quarter: 2008Q1

REPORT INFORMATION
  Report Type: 
  Country: None (occurrence: None)
  Receive Date: 20080306
  Receipt Date: 20080227
  Transmission Date: 20080703
  Serious: Yes (Other)
  Sender: FDA-Public Use
  Company Number: CN-ROCHE-550385

PATIENT
  Age: 63 Year
  Sex: Female

DRUGS (3)
  1. PEG-INTERFERON A-2A (RO 25-8310) [Suspect]
     Indication: HEPATITIS C
     Dosage: STRENGTH REPORTED AS 180 MCG/INJECTION.
     Route: 058
     Dates: start: 20080106, end: 20080210
  2. PEG-INTERFERON A-2A (RO 25-8310) [Suspect]
     Dosage: STRENGTH REPORTED AS 135MCG/INJECTION.
     Route: 058
     Dates: start: 20080217, end: 20080224
  3. VIRAZOLE [Concomitant]
     Indication: HEPATITIS C
     Route: 048
     Dates: start: 20080106, end: 20080215

REACTIONS (2)
  - BONE MARROW FAILURE [None]
  - CORONARY ARTERY DISEASE [None]
